FAERS Safety Report 7964640-5 (Version None)
Quarter: 2011Q4

REPORT INFORMATION
  Report Type: 
  Country: None (occurrence: None)
  Receive Date: 20111208
  Receipt Date: 20111130
  Transmission Date: 20120403
  Serious: No
  Sender: FDA-Public Use
  Company Number: ES-JNJFOC-20111200994

PATIENT
  Sex: Male

DRUGS (1)
  1. DURAGESIC-100 [Suspect]
     Indication: HEADACHE
     Dosage: REPORTED AS THREE MONTHS AGO, AFTER ONE MONTHS OF BEING TREATED WITH MUSCULAR RELAXANTS DRUGS
     Route: 062

REACTIONS (2)
  - TREMOR [None]
  - WRONG TECHNIQUE IN DRUG USAGE PROCESS [None]
